FAERS Safety Report 9214482 (Version 1)
Quarter: 2013Q2

REPORT INFORMATION
  Report Type: Spontaneous
  Country: TR (occurrence: TR)
  Receive Date: 20130405
  Receipt Date: 20130405
  Transmission Date: 20140414
  Serious: Yes (Hospitalization)
  Sender: FDA-Public Use
  Company Number: TR-UCBSA-082106

PATIENT
  Age: 10 Month
  Sex: Female
  Weight: 10 kg

DRUGS (5)
  1. LEVETIRACETAM [Suspect]
     Dosage: 300 MG/KG/D FOR 35 DAYS, (10 X RECOMMENDED DOSE FOR 5 WEEK)
  2. VIGABATRIN [Concomitant]
  3. TOPIRAMATE [Concomitant]
  4. CALCIUM FOLINATE [Concomitant]
  5. VITAMIN B6 [Concomitant]

REACTIONS (4)
  - Accidental overdose [Unknown]
  - Apathy [Recovered/Resolved]
  - Hypotonia [Recovered/Resolved]
  - Somnolence [Recovered/Resolved]
